FAERS Safety Report 6386235-X (Version None)
Quarter: 2009Q4

REPORT INFORMATION
  Report Type: 
  Country: None (occurrence: None)
  Receive Date: 20091002
  Receipt Date: 20090928
  Transmission Date: 20100525
  Serious: Yes (Other)
  Sender: FDA-Public Use
  Company Number: US-ELI_LILLY_AND_COMPANY-US200909006460

PATIENT
  Age: 60 Year
  Sex: Female

DRUGS (5)
  1. XIGRIS [Suspect]
     Indication: SEPSIS
     Dates: start: 20090925
  2. VANCOMYCIN HCL [Concomitant]
     Dates: start: 20090925
  3. LEVOPHED [Concomitant]
     Dosage: UNK, UNK
     Route: 042
     Dates: start: 20090901
  4. DOPAMINE HCL [Concomitant]
     Dates: start: 20090901
  5. HAEMODIALYTICS AND HAEMOFILTRATES [Concomitant]
     Indication: RENAL FAILURE
     Dates: start: 20090924

REACTIONS (6)
  - ACIDOSIS [None]
  - ARRHYTHMIA [None]
  - DRUG INEFFECTIVE [None]
  - INTERNATIONAL NORMALISED RATIO INCREASED [None]
  - PROTHROMBIN TIME PROLONGED [None]
  - STAPHYLOCOCCUS TEST POSITIVE [None]
